FAERS Safety Report 21622939 (Version 1)
Quarter: 2022Q4

REPORT INFORMATION
  Report Type: Spontaneous
  Country: US (occurrence: None)
  Receive Date: 20221118
  Receipt Date: 20221118
  Transmission Date: 20230112
  Serious: Yes (Other)
  Sender: FDA-Public Use
  Company Number: None

PATIENT
  Age: 28 Year
  Sex: Female
  Weight: 63.5 kg

DRUGS (7)
  1. MONTELUKAST [Suspect]
     Active Substance: MONTELUKAST SODIUM
  2. AMOXICILLIN [Concomitant]
     Active Substance: AMOXICILLIN
  3. AZELASTINE HYDROCHLORIDE [Concomitant]
     Active Substance: AZELASTINE HYDROCHLORIDE
  4. ZOFRAN [Concomitant]
     Active Substance: ONDANSETRON HYDROCHLORIDE
  5. benzonarate [Concomitant]
  6. NP THYROID [Concomitant]
     Active Substance: LEVOTHYROXINE\LIOTHYRONINE
  7. ALDACTONE [Concomitant]
     Active Substance: SPIRONOLACTONE

REACTIONS (11)
  - Mood altered [None]
  - Abnormal behaviour [None]
  - Suicidal ideation [None]
  - Restlessness [None]
  - Pollakiuria [None]
  - Decreased appetite [None]
  - Insomnia [None]
  - Libido increased [None]
  - Anger [None]
  - Aggression [None]
  - Abnormal dreams [None]

NARRATIVE: CASE EVENT DATE: 20221118
